FAERS Safety Report 13284663 (Version 2)
Quarter: 2017Q1

REPORT INFORMATION
  Report Type: Report from Study
  Country: US (occurrence: US)
  Receive Date: 20170301
  Receipt Date: 20170331
  Transmission Date: 20170428
  Serious: Yes (Other)
  Sender: FDA-Public Use
  Company Number: US-JAZZ-2017-US-002247

PATIENT
  Age: 54 Year
  Sex: Female

DRUGS (9)
  1. XYREM [Suspect]
     Active Substance: SODIUM OXYBATE
     Indication: NARCOLEPSY
     Dosage: UNK
     Route: 048
     Dates: start: 201702
  2. LEVOCETIRIZINE [Concomitant]
     Active Substance: LEVOCETIRIZINE
  3. ZOLOFT [Concomitant]
     Active Substance: SERTRALINE HYDROCHLORIDE
  4. MODAFINIL. [Concomitant]
     Active Substance: MODAFINIL
  5. BELSOMRA [Concomitant]
     Active Substance: SUVOREXANT
  6. GABAPENTIN. [Concomitant]
     Active Substance: GABAPENTIN
  7. CYANOCOBALAMIN. [Concomitant]
     Active Substance: CYANOCOBALAMIN
  8. VIVELLE-DOT [Concomitant]
     Active Substance: ESTRADIOL
  9. PROAIR HFA [Concomitant]
     Active Substance: ALBUTEROL SULFATE

REACTIONS (4)
  - Retching [Unknown]
  - Choking [Unknown]
  - Incorrect dose administered [Unknown]
  - Product preparation error [Unknown]

NARRATIVE: CASE EVENT DATE: 201702
